FAERS Safety Report 8979926 (Version 1)
Quarter: 2012Q4

REPORT INFORMATION
  Report Type: 
  Country: US (occurrence: US)
  Receive Date: 20121212
  Receipt Date: 20121212
  Transmission Date: 20130627
  Serious: Yes (Death, Hospitalization, Other)
  Sender: FDA-Public Use
  Company Number: US-ASTELLAS-1120672

PATIENT
  Age: 62 Year
  Sex: Male

DRUGS (2)
  1. TARCEVA [Suspect]
     Indication: NON-SMALL CELL LUNG CANCER
     Dosage: Daily
     Route: 048
     Dates: start: 20080102, end: 20080201
  2. TARCEVA [Suspect]
     Dosage: Daily
     Route: 048

REACTIONS (7)
  - Bile duct obstruction [Recovered/Resolved]
  - Pain [Unknown]
  - Rash [Recovered/Resolved]
  - Nausea [Recovered/Resolved]
  - Disease progression [Unknown]
  - Death [Fatal]
  - Lymphadenopathy [Recovered/Resolved]
